FAERS Safety Report 8916572 (Version 27)
Quarter: 2019Q2

REPORT INFORMATION
  Report Type: Spontaneous
  Country: CA (occurrence: CA)
  Receive Date: 20121120
  Receipt Date: 20190403
  Transmission Date: 20190711
  Serious: Yes (Life-Threatening, Hospitalization, Other)
  Sender: FDA-Public Use
  Company Number: CA-ROCHE-GNE312381

PATIENT
  Age: 53 Year
  Sex: Female
  Weight: 88 kg

DRUGS (23)
  1. XOLAIR [Suspect]
     Active Substance: OMALIZUMAB
     Dosage: UNK
     Route: 058
     Dates: start: 20140408
  2. XOLAIR [Suspect]
     Active Substance: OMALIZUMAB
     Dosage: UNK
     Route: 058
     Dates: start: 20161110
  3. PREDNISONE. [Suspect]
     Active Substance: PREDNISONE
     Indication: LOWER RESPIRATORY TRACT INFECTION
  4. SALBUTAMOL [Concomitant]
     Active Substance: ALBUTEROL
     Indication: PRODUCT USED FOR UNKNOWN INDICATION
     Route: 065
  5. XOLAIR [Suspect]
     Active Substance: OMALIZUMAB
     Indication: ASTHMA
     Dosage: VIAL
     Route: 058
     Dates: start: 20100624
  6. XOLAIR [Suspect]
     Active Substance: OMALIZUMAB
     Dosage: RIGHT ARM
     Route: 058
  7. XOLAIR [Suspect]
     Active Substance: OMALIZUMAB
     Dosage: UNK
     Route: 058
     Dates: start: 20170427
  8. XOLAIR [Suspect]
     Active Substance: OMALIZUMAB
     Dosage: UNK
     Route: 058
     Dates: start: 20170622
  9. XOLAIR [Suspect]
     Active Substance: OMALIZUMAB
     Dosage: 300 MG, EVERY 4 WEEKS
     Route: 058
     Dates: start: 20141223, end: 20150205
  10. XOLAIR [Suspect]
     Active Substance: OMALIZUMAB
     Dosage: LEFT ARM
     Route: 058
     Dates: start: 20141223, end: 20150205
  11. XOLAIR [Suspect]
     Active Substance: OMALIZUMAB
     Dosage: UNK
     Route: 058
     Dates: start: 20170720
  12. PREDNISONE. [Suspect]
     Active Substance: PREDNISONE
     Indication: ASTHMA
     Route: 065
     Dates: start: 20150205
  13. XOLAIR [Suspect]
     Active Substance: OMALIZUMAB
     Dosage: UNK
     Route: 058
     Dates: start: 20140805
  14. XOLAIR [Suspect]
     Active Substance: OMALIZUMAB
     Indication: PNEUMONIA
     Dosage: UNK
     Route: 058
     Dates: start: 20131210
  15. PREDNISONE. [Suspect]
     Active Substance: PREDNISONE
     Indication: PNEUMONIA
  16. PULMICORT TURBUHALER [Concomitant]
     Active Substance: BUDESONIDE
     Indication: PRODUCT USED FOR UNKNOWN INDICATION
     Dosage: UNK
     Route: 065
  17. PULMICORT TURBUHALER [Concomitant]
     Active Substance: BUDESONIDE
     Route: 065
  18. SALBUTAMOL [Concomitant]
     Active Substance: ALBUTEROL
     Dosage: UNK
     Route: 065
  19. XOLAIR [Suspect]
     Active Substance: OMALIZUMAB
     Dosage: UNK
     Route: 058
     Dates: start: 20161114
  20. XOLAIR [Suspect]
     Active Substance: OMALIZUMAB
     Dosage: UNK
     Route: 058
     Dates: start: 20160324
  21. XOLAIR [Suspect]
     Active Substance: OMALIZUMAB
     Dosage: UNK
     Route: 058
     Dates: start: 20170223
  22. ADVAIR HFA [Concomitant]
     Active Substance: FLUTICASONE PROPIONATE\SALMETEROL XINAFOATE
     Indication: PRODUCT USED FOR UNKNOWN INDICATION
     Route: 065
  23. ADVAIR HFA [Concomitant]
     Active Substance: FLUTICASONE PROPIONATE\SALMETEROL XINAFOATE
     Dosage: UNK
     Route: 065

REACTIONS (34)
  - Lower respiratory tract infection [Unknown]
  - Electrolyte imbalance [Unknown]
  - Syncope [Unknown]
  - Inappropriate schedule of product administration [Unknown]
  - Pneumonia [Not Recovered/Not Resolved]
  - Respiratory rate increased [Unknown]
  - Upper respiratory tract infection [Recovered/Resolved]
  - Weight increased [Unknown]
  - Device occlusion [Unknown]
  - Sinus congestion [Recovered/Resolved]
  - Fluid retention [Unknown]
  - Infection [Unknown]
  - Gastric infection [Unknown]
  - Viral infection [Unknown]
  - Oxygen saturation decreased [Unknown]
  - Blood pressure increased [Unknown]
  - Vomiting [Unknown]
  - Heart rate irregular [Unknown]
  - Productive cough [Unknown]
  - Haematoma [Unknown]
  - Pain in jaw [Unknown]
  - Expired product administered [Unknown]
  - Diarrhoea [Recovering/Resolving]
  - Dizziness [Unknown]
  - Cardiomegaly [Unknown]
  - Pulmonary congestion [Unknown]
  - Weight decreased [Unknown]
  - Malaise [Unknown]
  - Arrhythmia [Unknown]
  - Pulmonary hypertension [Unknown]
  - Lung infection [Recovering/Resolving]
  - Asthma [Recovering/Resolving]
  - Neoplasm malignant [Unknown]
  - Nausea [Unknown]

NARRATIVE: CASE EVENT DATE: 201104
